FAERS Safety Report 10427817 (Version 2)
Quarter: 2014Q3

REPORT INFORMATION
  Report Type: Report from Study
  Country: NL (occurrence: NL)
  Receive Date: 20140903
  Receipt Date: 20140903
  Transmission Date: 20150326
  Serious: Yes (Hospitalization)
  Sender: FDA-Public Use
  Company Number: NL-EXELIXIS-XL18413004673

PATIENT
  Age: 85 Year
  Sex: Male
  Weight: 76.5 kg

DRUGS (18)
  1. NADROPARIN [Concomitant]
     Active Substance: NADROPARIN
  2. OXYBUTIN [Concomitant]
     Active Substance: OXYBUTYNIN
  3. GOSERELIN [Concomitant]
     Active Substance: GOSERELIN
  4. CIPROFLOXACIN. [Concomitant]
     Active Substance: CIPROFLOXACIN
  5. XL184 [Suspect]
     Active Substance: CABOZANTINIB
     Indication: PROSTATE CANCER
     Dosage: 60 MG, QD
     Route: 048
     Dates: start: 20130702
  6. XL184 [Suspect]
     Active Substance: CABOZANTINIB
     Dosage: 20 MG, QD
     Route: 048
     Dates: start: 2013, end: 20131223
  7. ALENDRONIC ACID [Concomitant]
     Active Substance: ALENDRONIC ACID
  8. IRBESARTAN. [Concomitant]
     Active Substance: IRBESARTAN
  9. XL184 [Suspect]
     Active Substance: CABOZANTINIB
     Indication: PROSTATE CANCER
     Dosage: 5 MG, BID
     Route: 048
     Dates: start: 20130702, end: 20131223
  10. MACROGOL [Concomitant]
     Active Substance: POLYETHYLENE GLYCOLS
  11. DOXAZOSIN [Concomitant]
     Active Substance: DOXAZOSIN\DOXAZOSIN MESYLATE
  12. VENLAFAXINE [Concomitant]
     Active Substance: VENLAFAXINE HYDROCHLORIDE
  13. NEUROCREME [Concomitant]
  14. ESOMEPRAZOL [Concomitant]
     Active Substance: ESOMEPRAZOLE
  15. PREDNISOLON [Concomitant]
     Active Substance: PREDNISOLONE
  16. PARACETAMOL [Concomitant]
     Active Substance: ACETAMINOPHEN
  17. TRIAMTERENE. [Concomitant]
     Active Substance: TRIAMTERENE
  18. CALCIUM CARBONATE. [Concomitant]
     Active Substance: CALCIUM CARBONATE

REACTIONS (1)
  - Urinary tract infection [Not Recovered/Not Resolved]

NARRATIVE: CASE EVENT DATE: 20131222
